FAERS Safety Report 8052446 (Version 6)
Quarter: 2013Q1

REPORT INFORMATION
  Report Type: Report from Study
  Country: US (occurrence: US)
  Receive Date: 20110725
  Receipt Date: 20130319
  Transmission Date: 20140127
  Serious: Yes (Death, Hospitalization)
  Sender: FDA-Public Use
  Company Number: US-ROCHE-789685

PATIENT
  Age: 57 Year
  Sex: Male

DRUGS (13)
  1. PEG-INTERFERON ALFA 2A [Suspect]
     Indication: CHRONIC HEPATITIS C
     Dosage: DOSE REPORTED AS: 180 MICROGRAM 1 DAY, LAST DOSE: 11 APR 2011
     Route: 058
     Dates: start: 20100920, end: 20110411
  2. RIBAVIRIN [Suspect]
     Indication: CHRONIC HEPATITIS C
     Dosage: LAST DOSE: 11 APR 2011
     Route: 048
     Dates: start: 20100920, end: 20110411
  3. PROPRANOLOL [Concomitant]
     Route: 065
  4. SPIRONOLACTONE [Concomitant]
     Route: 065
  5. LANSOPRAZOLE [Concomitant]
     Route: 065
     Dates: start: 201003, end: 20100824
  6. URSO [Concomitant]
     Route: 065
  7. DILAUDID [Concomitant]
     Route: 065
     Dates: start: 20101208, end: 20101208
  8. VICODIN [Concomitant]
     Route: 065
     Dates: start: 20101208, end: 20101208
  9. CLINDAMYCIN [Concomitant]
     Route: 065
     Dates: start: 20101208, end: 20110103
  10. BENZONATATE [Concomitant]
     Route: 065
  11. TYLENOL [Concomitant]
     Route: 065
  12. RANITIDINE [Concomitant]
     Route: 065
  13. DACLATASVIR [Suspect]
     Indication: CHRONIC HEPATITIS C
     Dosage: LAST DOSE: 04 MAR 2011
     Route: 048
     Dates: start: 20100910, end: 20110304

REACTIONS (8)
  - Renal failure [Fatal]
  - Sepsis [Fatal]
  - Hepatic failure [Fatal]
  - Shock haemorrhagic [Fatal]
  - Encephalopathy [None]
  - Peritonitis bacterial [None]
  - Hepatic cirrhosis [None]
  - Portal hypertension [None]
